FAERS Safety Report 8980556 (Version 1)
Quarter: 2012Q4

REPORT INFORMATION
  Report Type: 
  Country: SE (occurrence: IT)
  Receive Date: 20121221
  Receipt Date: 20121221
  Transmission Date: 20130627
  Serious: Yes (Other)
  Sender: FDA-Public Use
  Company Number: SE-MYLANLABS-2012S1025761

PATIENT
  Sex: Male

DRUGS (1)
  1. NAPROXEN [Suspect]
     Indication: PRODUCT USED FOR UNKNOWN INDICATION
     Dates: end: 20120318

REACTIONS (4)
  - Dry eye [Unknown]
  - Eyelid irritation [Unknown]
  - Visual impairment [Unknown]
  - Photosensitivity reaction [Unknown]
